FAERS Safety Report 12183417 (Version 1)
Quarter: 2016Q1

REPORT INFORMATION
  Report Type: Spontaneous
  Country: US (occurrence: US)
  Receive Date: 20160316
  Receipt Date: 20160316
  Transmission Date: 20160526
  Serious: No
  Sender: FDA-Public Use
  Company Number: US-LNK INTERNATIONAL, INC.-1049144

PATIENT
  Age: 53 Year
  Sex: Female

DRUGS (1)
  1. EQUATE ACETAMINOPHEN 325MG, PHENYLEPHRINE HCL 5MG, GUAIFENESIN 200MG [Suspect]
     Active Substance: ACETAMINOPHEN\GUAIFENESIN\PHENYLEPHRINE HYDROCHLORIDE
     Indication: SINUS HEADACHE

REACTIONS (3)
  - Facial paralysis [None]
  - Eye pruritus [None]
  - Eye irritation [None]
